FAERS Safety Report 25079620 (Version 1)
Quarter: 2025Q1

REPORT INFORMATION
  Report Type: Spontaneous
  Country: US (occurrence: US)
  Receive Date: 20250314
  Receipt Date: 20250314
  Transmission Date: 20250409
  Serious: Yes (Other)
  Sender: PARI RESPIRATORY EQUIPMENT
  Company Number: US-PARI RESPIRATORY EQUIPMENT, INC.-2025PAR00010

PATIENT
  Age: 15 Year
  Sex: Male

DRUGS (24)
  1. KITABIS PAK [Suspect]
     Active Substance: TOBRAMYCIN
     Indication: Cystic fibrosis
     Dosage: 300 MG (1 VIAL) TWICE A DAY FOR 28 DAYS ON AND 28 DAYS OFF
     Dates: start: 20190104
  2. ACIDOPHILUS [Concomitant]
     Active Substance: LACTOBACILLUS ACIDOPHILUS
  3. AQUADEKS [ASCORBIC ACID;BETACAROTENE;BIOTIN;CALCIUM PANTOTHENATE;COLEC [Concomitant]
  4. AZITHROMYCIN [Concomitant]
     Active Substance: AZITHROMYCIN
  5. BACTRIM DS [Concomitant]
     Active Substance: SULFAMETHOXAZOLE\TRIMETHOPRIM
  6. BOOST KIDS [Concomitant]
  7. CETIRIZINE HYDROCHLORIDE [Concomitant]
     Active Substance: CETIRIZINE HYDROCHLORIDE
  8. COMPLETE FORMULATION MULT [Concomitant]
  9. CREON [Concomitant]
     Active Substance: PANCRELIPASE AMYLASE\PANCRELIPASE LIPASE\PANCRELIPASE PROTEASE
  10. CREON [Concomitant]
     Active Substance: PANCRELIPASE AMYLASE\PANCRELIPASE LIPASE\PANCRELIPASE PROTEASE
  11. CYPROHEPTADINE HYDROCHLORIDE [Concomitant]
     Active Substance: CYPROHEPTADINE HYDROCHLORIDE
  12. SODIUM CHLORIDE [Concomitant]
     Active Substance: SODIUM CHLORIDE
  13. PRIMABELLA MIS [Concomitant]
  14. ZYRTEC [Concomitant]
     Active Substance: CETIRIZINE HYDROCHLORIDE
  15. CHILDRENS TYLENOL [Concomitant]
     Active Substance: ACETAMINOPHEN
  16. POLYETHYLENE GLYCOL 3350 [Concomitant]
     Active Substance: POLYETHYLENE GLYCOL 3350
  17. SODIUM CHLORIDE [Concomitant]
     Active Substance: SODIUM CHLORIDE
  18. PULMOZYME [Concomitant]
     Active Substance: DORNASE ALFA
  19. LORATADINE [Concomitant]
     Active Substance: LORATADINE
  20. URSODIOL [Concomitant]
     Active Substance: URSODIOL
  21. PREVACID [Concomitant]
     Active Substance: LANSOPRAZOLE
  22. FLONASE ALLERGY SPRAY [Concomitant]
  23. PROAIR HFA [Concomitant]
     Active Substance: ALBUTEROL SULFATE
  24. TRIKAFTA [Concomitant]
     Active Substance: ELEXACAFTOR\IVACAFTOR\TEZACAFTOR

REACTIONS (11)
  - Pneumonia [Unknown]
  - Fatigue [Unknown]
  - Sleep disorder [Unknown]
  - Loss of personal independence in daily activities [Unknown]
  - Pharyngitis streptococcal [Unknown]
  - Infection [Unknown]
  - Product dose omission issue [Unknown]
  - Cystic fibrosis gastrointestinal disease [Unknown]
  - Flatulence [Unknown]
  - Abdominal pain upper [Unknown]
  - Pain [Unknown]

NARRATIVE: CASE EVENT DATE: 20250201
